FAERS Safety Report 4295799-1 (Version None)
Quarter: 2004Q1

REPORT INFORMATION
  Report Type: 
  Country: None (occurrence: None)
  Receive Date: 20040216
  Receipt Date: 20031106
  Transmission Date: 20041129
  Serious: No
  Sender: FDA-Public Use
  Company Number: US-GLAXOSMITHKLINE-A0433288A

PATIENT
  Age: 14 Year
  Sex: Male

DRUGS (4)
  1. LAMICTAL [Suspect]
     Indication: BIPOLAR DISORDER
     Dosage: 25MG PER DAY
     Route: 048
     Dates: start: 20031001
  2. PAXIL [Suspect]
  3. ESKALITH CR [Suspect]
  4. ESKALITH CR [Concomitant]

REACTIONS (5)
  - ACNE [None]
  - FATIGUE [None]
  - MANIA [None]
  - PRURITUS [None]
  - WEIGHT INCREASED [None]
